FAERS Safety Report 21422496 (Version 14)
Quarter: 2023Q2

REPORT INFORMATION
  Report Type: Spontaneous
  Country: US (occurrence: US)
  Receive Date: 20221007
  Receipt Date: 20230530
  Transmission Date: 20230721
  Serious: Yes (Hospitalization)
  Sender: FDA-Public Use
  Company Number: US-PFIZER INC-PV202200077891

PATIENT
  Age: 68 Year
  Sex: Female
  Weight: 68.03 kg

DRUGS (4)
  1. IBRANCE [Suspect]
     Active Substance: PALBOCICLIB
     Indication: Breast cancer female
     Dosage: 125 MG
  2. IBRANCE [Suspect]
     Active Substance: PALBOCICLIB
     Indication: Bone cancer metastatic
     Dosage: 100 MG, 1X/DAY
  3. IBRANCE [Suspect]
     Active Substance: PALBOCICLIB
     Dosage: 100 MG, CYCLIC (1 TABLET DAILY FOR 21 DAYS ON THEN 7 DAYS OFF)/ (100 MG PO DAILY D1-D21-7 DAYS OFF)
     Route: 048
  4. LETROZOLE [Concomitant]
     Active Substance: LETROZOLE
     Dosage: UNK

REACTIONS (8)
  - Full blood count decreased [Recovered/Resolved]
  - Neoplasm recurrence [Unknown]
  - Frustration tolerance decreased [Unknown]
  - Anxiety [Unknown]
  - White blood cell count decreased [Unknown]
  - Gait disturbance [Unknown]
  - Arthropathy [Unknown]
  - Pain [Unknown]
